FAERS Safety Report 6479902-0 (Version None)
Quarter: 2009Q4

REPORT INFORMATION
  Report Type: 
  Country: None (occurrence: None)
  Receive Date: 20091208
  Receipt Date: 20091101
  Transmission Date: 20100525
  Serious: Yes (Hospitalization)
  Sender: FDA-Public Use
  Company Number: US-SANOFI-AVENTIS-2009SA000726

PATIENT
  Age: 30 Year
  Sex: Female

DRUGS (2)
  1. AMBIEN CR [Suspect]
     Indication: INSOMNIA
     Route: 048
     Dates: start: 20060101
  2. ANTIBIOTICS [Suspect]
     Route: 065

REACTIONS (5)
  - CHAPPED LIPS [None]
  - DRUG HYPERSENSITIVITY [None]
  - DRUG INTERACTION [None]
  - RASH [None]
  - SWOLLEN TONGUE [None]
